FAERS Safety Report 7808367-9 (Version None)
Quarter: 2011Q4

REPORT INFORMATION
  Report Type: 
  Country: None (occurrence: None)
  Receive Date: 20111007
  Receipt Date: 20110926
  Transmission Date: 20120403
  Serious: Yes (Death, Life-Threatening)
  Sender: FDA-Public Use
  Company Number: 1056095

PATIENT
  Age: 6 Year
  Sex: Female
  Weight: 18 kg

DRUGS (35)
  1. CYCLOPHOSPHAMIDE [Suspect]
     Indication: BONE MARROW FAILURE
     Dosage: 200 MG/KG MILLIGRAM(S)/KILOGRAM, INTRAVENOUS (NOT OTHERWISE SPECIFIED)
     Route: 042
     Dates: start: 20101112, end: 20101115
  2. CALCIUM GLUCONATE [Concomitant]
  3. FOSCARNET SODIUM [Concomitant]
  4. OSELTAMIVIR [Concomitant]
  5. VORICONAZOLE [Concomitant]
  6. METHOTREXATE [Suspect]
     Indication: GRAFT VERSUS HOST DISEASE
     Dosage: 7.4 MG MILLIGRAM(S), INTRAVENOUS
     Route: 042
     Dates: start: 20101121, end: 20101124
  7. (BASILIXIMAB) [Concomitant]
  8. MYCOPHENOLATE MOFETIL [Concomitant]
  9. ONDANSETRON [Concomitant]
  10. BUSULFAN [Suspect]
     Indication: BONE MARROW FAILURE
     Dosage: 14 MG/KG MILLIGRAM(S)/KILOGRAM ORAL
     Route: 048
     Dates: start: 20101108, end: 20101111
  11. ACYCLOVIR [Concomitant]
  12. CEFTRIAXONE [Concomitant]
  13. IMMUNE GLOBULIN NOS [Concomitant]
  14. (INFLIXMAB) [Concomitant]
  15. POSACONAZOLE [Concomitant]
  16. CIPROFLOXACIN [Concomitant]
  17. GANCICLOVIR [Concomitant]
  18. (PENTAMIDINE) [Concomitant]
  19. TACROLIMUS [Concomitant]
  20. CASPOFUNGIN ACETATE [Concomitant]
  21. DALTEPARIN SODIUM [Concomitant]
  22. DAPSONE [Concomitant]
  23. (INTERFERON GAMMA-1B) [Concomitant]
  24. ITRACONAZOLE [Concomitant]
  25. RIBAVIRIN [Concomitant]
  26. VITAMIN K TAB [Concomitant]
  27. CYCLOSPORINE [Concomitant]
  28. LANSOPRAZOLE [Concomitant]
  29. MESNA [Concomitant]
  30. PHENYTOIN [Concomitant]
  31. (ALEMTUZUMAB) [Concomitant]
  32. ALLOPURINOL [Concomitant]
  33. AMPHOTERICIN B [Concomitant]
  34. (RITUXIMAB) [Concomitant]
  35. VALGANCICLOVIR [Concomitant]

REACTIONS (15)
  - URINARY TRACT INFECTION [None]
  - PERIORBITAL OEDEMA [None]
  - PAIN [None]
  - MUCOSAL INFLAMMATION [None]
  - POSTERIOR REVERSIBLE ENCEPHALOPATHY SYNDROME [None]
  - FUNGAL INFECTION [None]
  - RESPIRATORY DISTRESS [None]
  - GASTROINTESTINAL TOXICITY [None]
  - CARDIO-RESPIRATORY ARREST [None]
  - METAPNEUMOVIRUS INFECTION [None]
  - PNEUMONITIS [None]
  - DEEP VEIN THROMBOSIS [None]
  - PNEUMONIA CYTOMEGALOVIRAL [None]
  - IDIOPATHIC PNEUMONIA SYNDROME [None]
  - FEBRILE NEUTROPENIA [None]
